FAERS Safety Report 17134626 (Version 3)
Quarter: 2020Q1

REPORT INFORMATION
  Report Type: Spontaneous
  Country: FR (occurrence: FR)
  Receive Date: 20191210
  Receipt Date: 20200318
  Transmission Date: 20200409
  Serious: Yes (Other)
  Sender: FDA-Public Use
  Company Number: NVSC2019FR063505

PATIENT
  Age: 20 Year
  Sex: Male

DRUGS (7)
  1. METHOTREXATE. [Suspect]
     Active Substance: METHOTREXATE
     Indication: PUSTULAR PSORIASIS
     Dosage: 15 MG, QW
     Route: 065
  2. ACITRETIN. [Suspect]
     Active Substance: ACITRETIN
     Indication: PUSTULAR PSORIASIS
     Dosage: 25 MG, QD
     Route: 065
  3. SECUKINUMAB. [Suspect]
     Active Substance: SECUKINUMAB
     Indication: PUSTULAR PSORIASIS
     Dosage: 300 MG, QW (IN THE 12 HOURS THAT FOLLOWED THIRD INHECTION)
     Route: 058
  4. SECUKINUMAB. [Suspect]
     Active Substance: SECUKINUMAB
     Indication: PUSTULAR PSORIASIS
  5. ACITRETIN. [Suspect]
     Active Substance: ACITRETIN
     Indication: PUSTULAR PSORIASIS
     Dosage: 25 MG, 1X/DAY
     Route: 065
  6. DESLORATADINE. [Concomitant]
     Active Substance: DESLORATADINE
     Indication: PUSTULAR PSORIASIS
     Dosage: 20 MG, QD
     Route: 065
  7. METHOTREXATE. [Suspect]
     Active Substance: METHOTREXATE
     Dosage: 20 MG, QW
     Route: 065

REACTIONS (6)
  - Rash erythematous [Unknown]
  - Urticaria [Recovered/Resolved]
  - Urticaria [Unknown]
  - Angioedema [Unknown]
  - Anaphylactic reaction [Unknown]
  - Pruritus [Unknown]
